FAERS Safety Report 4885306-4 (Version None)
Quarter: 2005Q4

REPORT INFORMATION
  Report Type: 
  Country: None (occurrence: None)
  Receive Date: 20051220
  Receipt Date: 20051027
  Transmission Date: 20060501
  Serious: Yes (Other)
  Sender: FDA-Public Use
  Company Number: 422951

PATIENT
  Age: 65 Year
  Sex: Female
  Weight: 71.3 kg

DRUGS (3)
  1. BONIVA [Suspect]
     Indication: OSTEOPOROSIS PROPHYLAXIS
     Dosage: ORAL
     Route: 048
     Dates: start: 20050901
  2. FOSAMAX [Concomitant]
  3. ACTONEL [Concomitant]

REACTIONS (4)
  - ARTHRALGIA [None]
  - NAUSEA [None]
  - PAIN IN EXTREMITY [None]
  - VOMITING [None]
